FAERS Safety Report 5764253-X (Version None)
Quarter: 2008Q2

REPORT INFORMATION
  Report Type: 
  Country: None (occurrence: None)
  Receive Date: 20080610
  Receipt Date: 20080603
  Transmission Date: 20081010
  Serious: Yes (Congenital Anomaly)
  Sender: FDA-Public Use
  Company Number: US-BAXTER-2008BH004934

PATIENT
  Age: 3 Month
  Sex: Male
  Weight: 3 kg

DRUGS (3)
  1. HEPARIN SODIUM INJECTION [Suspect]
     Indication: DRUG EXPOSURE DURING PREGNANCY
     Dosage: DOSE UNIT:UNKNOWN
     Route: 064
     Dates: start: 20070601
  2. BREAST MILK [Concomitant]
     Indication: MEDICAL DIET
     Route: 048
     Dates: start: 20080126, end: 20080301
  3. ENFAMIL [Concomitant]
     Indication: MEDICAL DIET
     Route: 048

REACTIONS (1)
  - GROWTH RETARDATION [None]
